FAERS Safety Report 5310226-0 (Version None)
Quarter: 2007Q2

REPORT INFORMATION
  Report Type: 
  Country: None (occurrence: None)
  Receive Date: 20070427
  Receipt Date: 20070420
  Transmission Date: 20071010
  Serious: Yes (Other)
  Sender: FDA-Public Use
  Company Number: US-ROCHE-494053

PATIENT
  Age: 58 Year
  Sex: Female

DRUGS (2)
  1. CAPECITABINE [Suspect]
     Route: 048
     Dates: start: 20070103
  2. LAPATINIB [Suspect]
     Route: 048
     Dates: start: 20070103

REACTIONS (5)
  - ERYTHEMA [None]
  - INDURATION [None]
  - PROTEIN C DEFICIENCY [None]
  - SKIN WARM [None]
  - TENDERNESS [None]
